FAERS Safety Report 6029046-7 (Version None)
Quarter: 2009Q1

REPORT INFORMATION
  Report Type: 
  Country: None (occurrence: None)
  Receive Date: 20090106
  Receipt Date: 20081225
  Transmission Date: 20090719
  Serious: Yes (Death)
  Sender: FDA-Public Use
  Company Number: JP-ABBOTT-09P-087-0495895-00

PATIENT
  Age: 89 Year
  Sex: Male

DRUGS (5)
  1. LEUPROLIDE ACETATE [Suspect]
     Indication: PROSTATE CANCER STAGE III
     Route: 058
     Dates: start: 20071024, end: 20080409
  2. LEUPROLIDE ACETATE [Suspect]
     Dates: start: 20050512, end: 20070926
  3. CASODEX [Concomitant]
     Indication: PROSTATE CANCER STAGE III
     Route: 048
     Dates: start: 20080213, end: 20080901
  4. PHENOBARBITAL TAB [Concomitant]
     Indication: EPILEPSY
     Route: 048
     Dates: end: 20080901
  5. HANGEKOUBOKUTOU [Concomitant]
     Indication: THYROID CANCER
     Route: 048
     Dates: end: 20080901

REACTIONS (1)
  - PNEUMONIA ASPIRATION [None]
